FAERS Safety Report 12139773 (Version 1)
Quarter: 2016Q1

REPORT INFORMATION
  Report Type: Spontaneous
  Country: PT (occurrence: PT)
  Receive Date: 20160303
  Receipt Date: 20160303
  Transmission Date: 20160526
  Serious: Yes (Other)
  Sender: FDA-Public Use
  Company Number: PT-ELI_LILLY_AND_COMPANY-PT201601001877

PATIENT
  Age: 75 Year
  Sex: Female
  Weight: 58 kg

DRUGS (10)
  1. SERETAIDE [Concomitant]
     Active Substance: FLUTICASONE PROPIONATE\SALMETEROL XINAFOATE
     Indication: CHRONIC OBSTRUCTIVE PULMONARY DISEASE
     Dosage: 1 DF, QD
     Route: 055
     Dates: start: 201510
  2. FORSTEO [Suspect]
     Active Substance: TERIPARATIDE
     Indication: OSTEOPOROSIS
     Dosage: 20 UG, QD
     Route: 058
     Dates: start: 20151201, end: 20151218
  3. BETASERC                           /00141801/ [Concomitant]
     Active Substance: BETAHISTINE
     Indication: DIZZINESS
     Dosage: 24 MG, PRN
     Route: 048
     Dates: start: 201511
  4. SEDOXIL [Concomitant]
     Active Substance: MEXAZOLAM
     Indication: ANXIETY
     Dosage: 2 MG, QD
     Route: 048
  5. PRINZIDE [Concomitant]
     Active Substance: HYDROCHLOROTHIAZIDE\LISINOPRIL
     Indication: HYPERTENSION
     Dosage: 1 DF, QD
     Route: 048
  6. ZINASEN                            /00505201/ [Concomitant]
     Indication: DIZZINESS
     Dosage: 10 MG, PRN
     Route: 048
     Dates: start: 201511, end: 20151214
  7. NEBILET [Concomitant]
     Active Substance: NEBIVOLOL
     Indication: ARRHYTHMIA
     Dosage: 2.5 MG, QD
     Route: 048
  8. SELEGILINA [Concomitant]
     Indication: PARKINSON^S DISEASE
     Dosage: 1500 MG, QD
     Route: 048
     Dates: start: 201412, end: 20151213
  9. CALCITAB                           /07357001/ [Concomitant]
     Indication: OSTEOPOROSIS
     Dosage: 1500 MG, QD
     Route: 048
     Dates: start: 20151213
  10. TIZANIDINE. [Concomitant]
     Active Substance: TIZANIDINE
     Indication: PAIN
     Dosage: 2 MG, QD
     Route: 048
     Dates: start: 201509

REACTIONS (3)
  - Balance disorder [Recovered/Resolved]
  - Dizziness [Recovered/Resolved]
  - Tremor [Recovered/Resolved]

NARRATIVE: CASE EVENT DATE: 20151214
